FAERS Safety Report 19806564 (Version 1)
Quarter: 2021Q3

REPORT INFORMATION
  Report Type: Spontaneous
  Country: US (occurrence: US)
  Receive Date: 20210909
  Receipt Date: 20210909
  Transmission Date: 20211014
  Serious: Yes (Other)
  Sender: FDA-Public Use
  Company Number: US-SA-2021SA295134

PATIENT
  Age: 52 Year
  Sex: Male

DRUGS (2)
  1. ZANTAC [Suspect]
     Active Substance: RANITIDINE HYDROCHLORIDE
     Indication: ABDOMINAL DISCOMFORT
     Dosage: UNK, QD
     Dates: start: 199001, end: 200701
  2. ZANTAC [Suspect]
     Active Substance: RANITIDINE HYDROCHLORIDE
     Indication: DYSPEPSIA

REACTIONS (2)
  - Colorectal cancer stage IV [Unknown]
  - Prostate cancer stage IV [Unknown]

NARRATIVE: CASE EVENT DATE: 20050101
